FAERS Safety Report 10494508 (Version 1)
Quarter: 2014Q4

REPORT INFORMATION
  Report Type: Spontaneous
  Country: US (occurrence: None)
  Receive Date: 20141002
  Receipt Date: 20141002
  Transmission Date: 20150528
  Serious: Yes (Hospitalization)
  Sender: FDA-Public Use
  Company Number: None

PATIENT
  Age: 57 Year
  Sex: Male
  Weight: 103 kg

DRUGS (16)
  1. LEVOTHYROXINE NA (SYNTHROID) [Concomitant]
  2. LISINOPRIL. [Concomitant]
     Active Substance: LISINOPRIL
  3. NIACIN (SLO-NIACIN) [Concomitant]
  4. SIMVASTATIN. [Concomitant]
     Active Substance: SIMVASTATIN
  5. OXYCODONE [Concomitant]
     Active Substance: OXYCODONE
  6. APREPITANT. [Concomitant]
     Active Substance: APREPITANT
  7. VENLAFAXINE HCL [Concomitant]
     Active Substance: VENLAFAXINE HYDROCHLORIDE
  8. DICLOFENAC NA [Concomitant]
  9. PROCHLORPERAZINE MALEATE. [Concomitant]
     Active Substance: PROCHLORPERAZINE MALEATE
  10. SENNOSIDES. [Concomitant]
     Active Substance: SENNOSIDES
  11. METHOCARBAMOL. [Concomitant]
     Active Substance: METHOCARBAMOL
  12. OMEPRAZOLE. [Concomitant]
     Active Substance: OMEPRAZOLE
  13. METOPROLOL TARTRATE. [Concomitant]
     Active Substance: METOPROLOL TARTRATE
  14. ONDANSETRON HCL [Concomitant]
     Active Substance: ONDANSETRON HYDROCHLORIDE
  15. LEVOTHYROXINE NA (SYNTHROID) [Concomitant]
  16. OXALIPLATIN. [Suspect]
     Active Substance: OXALIPLATIN
     Indication: OESOPHAGEAL SQUAMOUS CELL CARCINOMA
     Route: 042
     Dates: start: 20140828, end: 20140918

REACTIONS (2)
  - Pulmonary embolism [None]
  - Anaphylactic reaction [None]

NARRATIVE: CASE EVENT DATE: 20140918
